FAERS Safety Report 24265867 (Version 3)
Quarter: 2024Q3

REPORT INFORMATION
  Report Type: Report from Study
  Country: CA (occurrence: CA)
  Receive Date: 20240830
  Receipt Date: 20240930
  Transmission Date: 20241017
  Serious: Yes (Other)
  Sender: JOHNSON AND JOHNSON
  Company Number: CA-JNJFOC-20240776045

PATIENT
  Sex: Female
  Weight: 73 kg

DRUGS (3)
  1. SIMPONI [Suspect]
     Active Substance: GOLIMUMAB
     Indication: Rheumatoid arthritis
     Route: 041
  2. SIMPONI [Suspect]
     Active Substance: GOLIMUMAB
     Route: 041
  3. METHOTREXATE [Suspect]
     Active Substance: METHOTREXATE

REACTIONS (11)
  - Rheumatoid arthritis [Not Recovered/Not Resolved]
  - Abdominal discomfort [Unknown]
  - Chills [Unknown]
  - Cough [Unknown]
  - Dizziness [Unknown]
  - White blood cell count increased [Unknown]
  - Blood urine present [Unknown]
  - Brain fog [Recovering/Resolving]
  - Sciatica [Unknown]
  - Blood sodium decreased [Unknown]
  - Off label use [Unknown]
